FAERS Safety Report 14139319 (Version 2)
Quarter: 2017Q4

REPORT INFORMATION
  Report Type: Spontaneous
  Country: JP (occurrence: JP)
  Receive Date: 20171028
  Receipt Date: 20171208
  Transmission Date: 20180321
  Serious: No
  Sender: FDA-Public Use
  Company Number: JP-AMGEN-JPNSP2017126033

PATIENT
  Sex: Female
  Weight: 61 kg

DRUGS (20)
  1. ROMIPLATE [Suspect]
     Active Substance: ROMIPLOSTIM
     Dosage: 280 MUG, QD
     Route: 058
     Dates: start: 20170908, end: 20170908
  2. PREDONINE [Concomitant]
     Active Substance: PREDNISOLONE
     Dosage: 10 MG, UNK
     Route: 065
     Dates: start: 20170929, end: 20170929
  3. ESOMEPRAZOLE [Concomitant]
     Active Substance: ESOMEPRAZOLE
     Indication: PROPHYLAXIS AGAINST GASTROINTESTINAL ULCER
     Dosage: 20 MG, UNK
     Route: 048
     Dates: start: 20170614
  4. PREDONINE [Concomitant]
     Active Substance: PREDNISOLONE
     Dosage: 15 MG, UNK
     Route: 065
     Dates: start: 20170915, end: 20170915
  5. PREDONINE [Concomitant]
     Active Substance: PREDNISOLONE
     Dosage: 7.5 MG, UNK
     Route: 065
     Dates: start: 20171027, end: 20171027
  6. ROMIPLATE [Suspect]
     Active Substance: ROMIPLOSTIM
     Dosage: 225 MUG, QD
     Route: 058
     Dates: start: 20170901, end: 20170901
  7. PREDONINE [Concomitant]
     Active Substance: PREDNISOLONE
     Dosage: 20 MG, UNK
     Route: 065
     Dates: start: 20170822, end: 20170822
  8. PREDONINE [Concomitant]
     Active Substance: PREDNISOLONE
     Dosage: 12.5 MG, UNK
     Route: 065
     Dates: start: 20170922, end: 20170922
  9. KENKETU GLOVENIN-I [Concomitant]
     Active Substance: HUMAN IMMUNOGLOBULIN G
     Dosage: 25 G, UNK
     Route: 041
     Dates: start: 20170812, end: 20170816
  10. ROMIPLATE [Suspect]
     Active Substance: ROMIPLOSTIM
     Indication: IMMUNE THROMBOCYTOPENIC PURPURA
     Dosage: 60 MUG, QD
     Route: 058
     Dates: start: 20170804, end: 20170804
  11. PREDONINE [Concomitant]
     Active Substance: PREDNISOLONE
     Dosage: 30 MG, UNK
     Route: 065
     Dates: start: 20170728, end: 20170728
  12. PREDONINE [Concomitant]
     Active Substance: PREDNISOLONE
     Dosage: 6 MG, UNK
     Route: 065
     Dates: start: 20171117, end: 20171117
  13. ROMIPLATE [Suspect]
     Active Substance: ROMIPLOSTIM
     Dosage: 240 MUG, QD
     Route: 058
     Dates: start: 20170810, end: 20170810
  14. KENKETU GLOVENIN-I [Concomitant]
     Active Substance: HUMAN IMMUNOGLOBULIN G
     Dosage: 20 G, UNK
     Route: 041
     Dates: start: 20170728, end: 20170801
  15. FERROUS CITRATE NA [Concomitant]
     Active Substance: SODIUM FERROUS CITRATE
     Indication: ANAEMIA
     Dosage: 200 MG, UNK
     Route: 048
     Dates: start: 20170614
  16. ROMIPLATE [Suspect]
     Active Substance: ROMIPLOSTIM
     Dosage: 300 MUG, QD
     Route: 058
     Dates: start: 20170816, end: 20170816
  17. ROMIPLATE [Suspect]
     Active Substance: ROMIPLOSTIM
     Dosage: 180 MUG, QD
     Route: 058
     Dates: start: 20170823, end: 20170823
  18. SULFAMETHOXAZOLE AND TRIMETHOPRIM [Concomitant]
     Active Substance: SULFAMETHOXAZOLE\TRIMETHOPRIM
     Dosage: 1 DF, BID
     Route: 048
  19. HUMALOG [Concomitant]
     Active Substance: INSULIN LISPRO
     Dosage: UNK, TID
     Route: 058
     Dates: start: 20170614, end: 20170817
  20. ROMIPLATE [Suspect]
     Active Substance: ROMIPLOSTIM
     Dosage: 60 MUG, QD
     Route: 058
     Dates: start: 20170807, end: 20170807

REACTIONS (2)
  - Blast cells present [Recovering/Resolving]
  - Exposure during pregnancy [Unknown]

NARRATIVE: CASE EVENT DATE: 20170908
